FAERS Safety Report 11241618 (Version 1)
Quarter: 2015Q3

REPORT INFORMATION
  Report Type: Spontaneous
  Country: FR (occurrence: FR)
  Receive Date: 20150706
  Receipt Date: 20150706
  Transmission Date: 20151125
  Serious: Yes (Death, Life-Threatening)
  Sender: FDA-Public Use
  Company Number: FR-ASTRAZENECA-2015SE65180

PATIENT
  Age: 33313 Day
  Sex: Female

DRUGS (9)
  1. TRAMADOL BASE [Suspect]
     Active Substance: TRAMADOL
     Indication: PAIN
     Route: 048
     Dates: start: 20150610, end: 20150616
  2. RISPERDAL [Concomitant]
     Active Substance: RISPERIDONE
     Dosage: 0.5 MG IN THE MORNING AND IN THE EVENING
     Dates: end: 20150611
  3. OROZAMUDOL [Concomitant]
     Active Substance: TRAMADOL
     Dosage: AS REQUIRED
     Dates: start: 20150603
  4. XEROQUEL [Suspect]
     Active Substance: QUETIAPINE FUMARATE
     Indication: MAJOR DEPRESSION
     Route: 048
     Dates: start: 20150604, end: 20150616
  5. KARDEGIC [Concomitant]
     Active Substance: ASPIRIN LYSINE
     Indication: ATRIAL FIBRILLATION
  6. ZAMUDOL [Concomitant]
     Active Substance: TRAMADOL HYDROCHLORIDE
  7. BISOCE [Concomitant]
     Active Substance: BISOPROLOL
     Dosage: 5 MG IN THE MORNING AND IN THE EVENING
  8. PAROXETINE [Concomitant]
     Active Substance: PAROXETINE\PAROXETINE HYDROCHLORIDE
  9. LAMOTRIGINE. [Concomitant]
     Active Substance: LAMOTRIGINE
     Dates: end: 20150616

REACTIONS (9)
  - Death [Fatal]
  - Disturbance in attention [Unknown]
  - Urinary retention [Unknown]
  - Hypertonia [Unknown]
  - Trismus [Unknown]
  - Extrapyramidal disorder [Unknown]
  - Psychomotor retardation [Unknown]
  - Acute kidney injury [Unknown]
  - Pain [Unknown]

NARRATIVE: CASE EVENT DATE: 20150615
